FAERS Safety Report 8274019-7 (Version None)
Quarter: 2012Q2

REPORT INFORMATION
  Report Type: 
  Country: None (occurrence: None)
  Receive Date: 20120409
  Receipt Date: 20120328
  Transmission Date: 20120825
  Serious: Yes (Hospitalization)
  Sender: FDA-Public Use
  Company Number: JPI-P-019857

PATIENT
  Age: 63 Year
  Sex: Female

DRUGS (6)
  1. PREDNISONE [Concomitant]
  2. ESZOPICLONE [Concomitant]
  3. MILNACIPRAN HYDROCHLORIDE [Concomitant]
  4. FAMOTIDINE [Concomitant]
  5. XYREM [Suspect]
     Indication: NARCOLEPSY
     Dosage: 7 GM (3.5 GM, 2 IN 1 D), ORAL
     Route: 048
     Dates: start: 20080320
  6. OXYCODONE HCL [Concomitant]

REACTIONS (2)
  - ADHESION [None]
  - SMALL INTESTINAL OBSTRUCTION [None]
